FAERS Safety Report 23033402 (Version 2)
Quarter: 2023Q4

REPORT INFORMATION
  Report Type: Spontaneous
  Country: AR (occurrence: AR)
  Receive Date: 20231005
  Receipt Date: 20231012
  Transmission Date: 20240109
  Serious: Yes (Other)
  Sender: FDA-Public Use
  Company Number: AR-PFIZER INC-PV202300146787

PATIENT
  Age: 76 Year
  Sex: Female

DRUGS (2)
  1. IBRANCE [Suspect]
     Active Substance: PALBOCICLIB
     Indication: Breast cancer metastatic
     Dosage: 125 MG, CYCLIC (DAILY 3 X1 SCHEME)
     Dates: start: 20190726, end: 20230926
  2. LETROZOLE [Concomitant]
     Active Substance: LETROZOLE

REACTIONS (8)
  - Diabetes mellitus [Unknown]
  - Kidney infection [Unknown]
  - Nasopharyngitis [Recovered/Resolved]
  - Dry skin [Unknown]
  - Hypertension [Unknown]
  - Dizziness [Unknown]
  - Blood cholesterol increased [Unknown]
  - Intentional dose omission [Unknown]

NARRATIVE: CASE EVENT DATE: 20210101
